FAERS Safety Report 14635216 (Version 1)
Quarter: 2018Q1

REPORT INFORMATION
  Report Type: Spontaneous
  Country: US (occurrence: US)
  Receive Date: 20180313
  Receipt Date: 20180313
  Transmission Date: 20180509
  Serious: No
  Sender: FDA-Public Use
  Company Number: None

PATIENT
  Age: 79 Year
  Sex: Male
  Weight: 99.79 kg

DRUGS (2)
  1. METFORMIN HCI [Concomitant]
     Active Substance: METFORMIN HYDROCHLORIDE
  2. ZYTIGA [Suspect]
     Active Substance: ABIRATERONE ACETATE
     Indication: PROSTATE CANCER
     Route: 048
     Dates: start: 20180219

REACTIONS (3)
  - Nausea [None]
  - Pelvic pain [None]
  - Prostatic specific antigen decreased [None]
